FAERS Safety Report 7811936-3 (Version None)
Quarter: 2011Q4

REPORT INFORMATION
  Report Type: 
  Country: None (occurrence: None)
  Receive Date: 20111013
  Receipt Date: 20111009
  Transmission Date: 20120403
  Serious: Yes (Death, Life-Threatening, Hospitalization)
  Sender: FDA-Public Use
  Company Number: PHHY2011MX89682

PATIENT
  Sex: Female

DRUGS (1)
  1. DIOVAN HCT [Suspect]
     Indication: HYPERTENSION
     Dosage: 1 DF, QD (160/12.5 MG)
     Dates: start: 20101115, end: 20110202

REACTIONS (3)
  - ASTHENIA [None]
  - DEATH [None]
  - RENAL IMPAIRMENT [None]
